FAERS Safety Report 6109007-X (Version None)
Quarter: 2009Q1

REPORT INFORMATION
  Report Type: 
  Country: None (occurrence: None)
  Receive Date: 20090310
  Receipt Date: 20090225
  Transmission Date: 20090719
  Serious: Yes (Other)
  Sender: FDA-Public Use
  Company Number: CA-ELI_LILLY_AND_COMPANY-CA200902007437

PATIENT
  Sex: Female

DRUGS (9)
  1. FORTEO [Suspect]
     Indication: OSTEOPOROSIS
     Dosage: 20 UG, DAILY (1/D)
     Route: 058
     Dates: start: 20080331
  2. CALCIUM [Concomitant]
  3. VITAMIN D [Concomitant]
  4. DILAUDID [Concomitant]
  5. PARIET [Concomitant]
  6. TRAZODONE HCL [Concomitant]
  7. LORAZEPAM [Concomitant]
  8. ATENOLOL [Concomitant]
  9. TOPIRAMATE [Concomitant]

REACTIONS (3)
  - BRAIN NEOPLASM [None]
  - FLANK PAIN [None]
  - NEPHROLITHIASIS [None]
